FAERS Safety Report 7867541-6 (Version None)
Quarter: 2011Q4

REPORT INFORMATION
  Report Type: 
  Country: None (occurrence: None)
  Receive Date: 20111028
  Receipt Date: 20111021
  Transmission Date: 20120403
  Serious: Yes (Other)
  Sender: FDA-Public Use
  Company Number: PHHY2011AU93641

PATIENT
  Sex: Female

DRUGS (1)
  1. GLEEVEC [Suspect]
     Indication: CHRONIC MYELOID LEUKAEMIA

REACTIONS (4)
  - NEUTROPENIA [None]
  - SEPTIC SHOCK [None]
  - BONE PAIN [None]
  - WHITE BLOOD CELL COUNT DECREASED [None]
